FAERS Safety Report 18439602 (Version 5)
Quarter: 2021Q4

REPORT INFORMATION
  Report Type: Spontaneous
  Country: None (occurrence: US)
  Receive Date: 20201029
  Receipt Date: 20211125
  Transmission Date: 20220303
  Serious: No
  Sender: FDA-Public Use
  Company Number: US-AKCEA THERAPEUTICS-2020IS001386

PATIENT
  Age: 62 Year
  Sex: Male

DRUGS (3)
  1. TEGSEDI [Suspect]
     Active Substance: INOTERSEN SODIUM
     Indication: Hereditary neuropathic amyloidosis
     Route: 058
     Dates: start: 20200824
  2. DEVICE [Suspect]
     Active Substance: DEVICE
  3. TAFAMIDIS [Concomitant]
     Active Substance: TAFAMIDIS
     Route: 065

REACTIONS (20)
  - Injection site pain [Unknown]
  - Headache [Recovered/Resolved]
  - Chills [Recovered/Resolved]
  - Middle insomnia [Unknown]
  - Blood creatinine increased [Unknown]
  - Glomerular filtration rate decreased [Unknown]
  - Creatinine urine abnormal [Not Recovered/Not Resolved]
  - Urine protein/creatinine ratio increased [Unknown]
  - Protein urine present [Not Recovered/Not Resolved]
  - Blood bilirubin abnormal [Unknown]
  - Aspartate aminotransferase increased [Unknown]
  - Urine ketone body present [Not Recovered/Not Resolved]
  - White blood cells urine positive [Not Recovered/Not Resolved]
  - Urinary casts [Unknown]
  - Urine abnormality [Unknown]
  - Platelet count decreased [Not Recovered/Not Resolved]
  - Red blood cells urine positive [Unknown]
  - Bacterial test positive [Unknown]
  - Alanine aminotransferase abnormal [Unknown]
  - Laboratory test abnormal [Unknown]

NARRATIVE: CASE EVENT DATE: 20200801
